FAERS Safety Report 8190810-X (Version None)
Quarter: 2012Q1

REPORT INFORMATION
  Report Type: 
  Country: None (occurrence: None)
  Receive Date: 20120307
  Receipt Date: 20120301
  Transmission Date: 20120608
  Serious: Yes (Hospitalization)
  Sender: FDA-Public Use
  Company Number: US-ABBOTT-12P-163-0910109-00

PATIENT
  Age: 17 Year
  Sex: Female

DRUGS (1)
  1. HUMIRA [Suspect]
     Indication: PRODUCT USED FOR UNKNOWN INDICATION

REACTIONS (8)
  - CONDITION AGGRAVATED [None]
  - RASH [None]
  - GINGIVAL SWELLING [None]
  - EYE INFLAMMATION [None]
  - RASH GENERALISED [None]
  - NERVOUS SYSTEM DISORDER [None]
  - SKIN MASS [None]
  - ALOPECIA [None]
